FAERS Safety Report 7688295-2 (Version None)
Quarter: 2011Q3

REPORT INFORMATION
  Report Type: 
  Country: None (occurrence: None)
  Receive Date: 20110817
  Receipt Date: 20110613
  Transmission Date: 20111222
  Serious: No
  Sender: FDA-Public Use
  Company Number: US-KINGPHARMUSA00001-K201100713

PATIENT
  Sex: Female

DRUGS (2)
  1. TYROSINE [Concomitant]
     Indication: HYPOTHYROIDISM
     Dosage: UNK
  2. CYTOMEL [Suspect]
     Indication: HYPOTHYROIDISM
     Dosage: 5 MCG, BID
     Dates: start: 20090101

REACTIONS (3)
  - ASTHMA [None]
  - URTICARIA [None]
  - HYPERSENSITIVITY [None]
